FAERS Safety Report 17214762 (Version 6)
Quarter: 2022Q3

REPORT INFORMATION
  Report Type: Spontaneous
  Country: ES (occurrence: ES)
  Receive Date: 20191230
  Receipt Date: 20220920
  Transmission Date: 20221027
  Serious: Yes (Hospitalization, Other)
  Sender: FDA-Public Use
  Company Number: ES-KRKA-ES2019K14568LIT

PATIENT
  Age: 42 Year
  Sex: Female

DRUGS (3)
  1. INDAPAMIDE [Suspect]
     Active Substance: INDAPAMIDE
     Indication: Essential hypertension
     Dosage: 1.5 MG, PER DAY
     Route: 065
  2. INDAPAMIDE [Suspect]
     Active Substance: INDAPAMIDE
     Indication: Hypertension
  3. ATORVASTATIN [Suspect]
     Active Substance: ATORVASTATIN
     Indication: Hypercholesterolaemia
     Dosage: 20 MG, PER DAY
     Route: 065

REACTIONS (11)
  - Dermatomyositis [Recovering/Resolving]
  - Necrotising myositis [Unknown]
  - Immune-mediated myositis [Recovered/Resolved]
  - Myalgia [Recovered/Resolved]
  - Myopathy [Recovered/Resolved]
  - Asthenia [Recovered/Resolved]
  - Livedo reticularis [Recovering/Resolving]
  - Muscular weakness [Recovered/Resolved]
  - Rash maculo-papular [Recovering/Resolving]
  - Erythema multiforme [Recovering/Resolving]
  - Autoimmune myositis [Recovering/Resolving]
